FAERS Safety Report 4796552-2 (Version None)
Quarter: 2005Q4

REPORT INFORMATION
  Report Type: 
  Country: None (occurrence: None)
  Receive Date: 20051011
  Receipt Date: 20040924
  Transmission Date: 20060501
  Serious: Yes (Hospitalization, Other)
  Sender: FDA-Public Use
  Company Number: US-JNJFOC-20040608014

PATIENT
  Age: 29 Year
  Sex: Female
  Weight: 81.1939 kg

DRUGS (6)
  1. ULTRACET [Suspect]
     Indication: PAIN
     Dosage: 1-2 TABS Q 406 HOURS PRN
     Dates: start: 20040610, end: 20040622
  2. LORTAB [Concomitant]
  3. PERIACTIN [Concomitant]
  4. ZOLOFT [Concomitant]
  5. PHENERGAN [Concomitant]
  6. . [Concomitant]

REACTIONS (1)
  - CONVULSION [None]
